FAERS Safety Report 9137178 (Version 1)
Quarter: 2013Q1

REPORT INFORMATION
  Report Type: Spontaneous
  Country: US (occurrence: US)
  Receive Date: 20130304
  Receipt Date: 20130304
  Transmission Date: 20140127
  Serious: Yes (Other)
  Sender: FDA-Public Use
  Company Number: CHPA2013US003720

PATIENT
  Age: 73 Year
  Sex: Female

DRUGS (3)
  1. MAALOX ANTACID/ANTIGAS MAX LIQ [Suspect]
     Indication: DYSPEPSIA
     Dosage: UNK, PRN
     Route: 048
  2. MAALOX ANTACID/ANTIGAS MAX LIQ [Suspect]
     Dosage: 3 TSP, PRN
     Route: 048
  3. PRILOSEC [Concomitant]
     Indication: DYSPEPSIA
     Dosage: UNK, IN THE MORNING

REACTIONS (4)
  - Hiatus hernia [Not Recovered/Not Resolved]
  - Inflammation [Recovered/Resolved]
  - Wrong technique in drug usage process [Unknown]
  - Expired drug administered [Unknown]
